FAERS Safety Report 10662365 (Version 1)
Quarter: 2014Q4

REPORT INFORMATION
  Report Type: Spontaneous
  Country: US (occurrence: None)
  Receive Date: 20141217
  Receipt Date: 20141217
  Transmission Date: 20150529
  Serious: Yes (Life-Threatening, Disabling, Other)
  Sender: FDA-Public Use
  Company Number: None

PATIENT
  Age: 49 Year
  Sex: Female
  Weight: 93.9 kg

DRUGS (1)
  1. LYRICA [Suspect]
     Active Substance: PREGABALIN
     Indication: FIBROMYALGIA
     Dosage: RAMPING STARTING AT MIN.
     Route: 048
     Dates: start: 20140415, end: 20140715

REACTIONS (11)
  - Autonomic nervous system imbalance [None]
  - Impaired gastric emptying [None]
  - Hypotension [None]
  - Hypertension [None]
  - Serotonin syndrome [None]
  - Weight increased [None]
  - Loss of consciousness [None]
  - Dysphemia [None]
  - Fall [None]
  - Walking aid user [None]
  - Chest pain [None]

NARRATIVE: CASE EVENT DATE: 20140619
